FAERS Safety Report 5256469-6 (Version None)
Quarter: 2007Q1

REPORT INFORMATION
  Report Type: 
  Country: None (occurrence: None)
  Receive Date: 20070306
  Receipt Date: 20070302
  Transmission Date: 20070707
  Serious: Yes (Hospitalization)
  Sender: FDA-Public Use
  Company Number: US-GLAXOSMITHKLINE-A0641584A

PATIENT
  Age: 69 Year
  Sex: Female

DRUGS (4)
  1. PAXIL CR [Suspect]
     Indication: DEPRESSION
     Dosage: 12.5MG PER DAY
     Route: 048
  2. ZOCOR [Concomitant]
  3. VITAMIN B-12 INJECTION [Concomitant]
  4. ASPIRIN [Concomitant]

REACTIONS (6)
  - AGGRESSION [None]
  - ANGER [None]
  - CONVULSION [None]
  - FALL [None]
  - HEAD INJURY [None]
  - NIGHTMARE [None]
